FAERS Safety Report 8696569 (Version 5)
Quarter: 2013Q4

REPORT INFORMATION
  Report Type: Spontaneous
  Country: US (occurrence: US)
  Receive Date: 20120801
  Receipt Date: 20131031
  Transmission Date: 20140711
  Serious: No
  Sender: FDA-Public Use
  Company Number: US-009507513-2012SP030122

PATIENT
  Age: 25 Year
  Sex: Female
  Weight: 92.99 kg

DRUGS (1)
  1. IMPLANON [Suspect]
     Indication: CONTRACEPTION
     Dosage: 1 DF, UNK
     Route: 059
     Dates: start: 200812

REACTIONS (8)
  - Amenorrhoea [Recovered/Resolved]
  - Incorrect drug administration duration [Unknown]
  - Device difficult to use [Unknown]
  - Medical device complication [Unknown]
  - Medical device complication [Unknown]
  - Medical device complication [Unknown]
  - Medical device complication [Unknown]
  - No adverse event [Unknown]
